FAERS Safety Report 9820196 (Version 1)
Quarter: 2013Q4

REPORT INFORMATION
  Report Type: Spontaneous
  Country: IL (occurrence: None)
  Receive Date: 20131024
  Receipt Date: 20131024
  Transmission Date: 20140711
  Serious: Yes (Other)
  Sender: FDA-Public Use
  Company Number: 2013-01356

PATIENT
  Age: 52 Year
  Sex: Male

DRUGS (3)
  1. QUETIAPINE [Suspect]
     Indication: MOOD ALTERED
  2. VALPROATE [Concomitant]
  3. CARBAMAZEPINE [Concomitant]

REACTIONS (1)
  - Somnambulism [None]
